FAERS Safety Report 5849402-7 (Version None)
Quarter: 2008Q3

REPORT INFORMATION
  Report Type: 
  Country: None (occurrence: None)
  Receive Date: 20080819
  Receipt Date: 20080818
  Transmission Date: 20090109
  Serious: Yes (Hospitalization)
  Sender: FDA-Public Use
  Company Number: FR-BRISTOL-MYERS SQUIBB COMPANY-14238059

PATIENT
  Age: 71 Year
  Sex: Female

DRUGS (11)
  1. COAPROVEL TABS 300MG/12.5MG [Suspect]
     Route: 048
     Dates: end: 20080514
  2. GLUCOPHAGE [Suspect]
     Route: 048
     Dates: end: 20080514
  3. FUROSEMIDE [Suspect]
     Route: 048
  4. LYRICA [Suspect]
     Route: 048
     Dates: start: 20080401, end: 20080514
  5. TEMERIT [Suspect]
     Route: 048
     Dates: end: 20080514
  6. LERCAN [Suspect]
     Route: 048
     Dates: end: 20080514
  7. AMOXICILLIN [Suspect]
     Route: 048
     Dates: end: 20080514
  8. LEVEMIR [Suspect]
     Route: 057
     Dates: end: 20080514
  9. FLECAINE [Suspect]
     Route: 048
     Dates: end: 20080514
  10. FLUOXETINE [Suspect]
     Route: 048
     Dates: end: 20080514
  11. PREVISCAN [Concomitant]

REACTIONS (5)
  - BRADYCARDIA [None]
  - ELECTROCARDIOGRAM QRS COMPLEX PROLONGED [None]
  - HYPERKALAEMIA [None]
  - RENAL FAILURE ACUTE [None]
  - VOMITING [None]
